FAERS Safety Report 5489520-9 (Version None)
Quarter: 2007Q4

REPORT INFORMATION
  Report Type: 
  Country: None (occurrence: None)
  Receive Date: 20071016
  Receipt Date: 20071016
  Transmission Date: 20080405
  Serious: Yes (Other)
  Sender: FDA-Public Use
  Company Number: None

PATIENT
  Age: 36 Year
  Sex: Female
  Weight: 68.0396 kg

DRUGS (2)
  1. CHANTIX [Suspect]
     Indication: NICOTINE DEPENDENCE
     Dosage: 1 MG BID PO
     Route: 048
     Dates: start: 20070901, end: 20071015
  2. CHANTIX [Suspect]
     Indication: SMOKER
     Dosage: 1 MG BID PO
     Route: 048
     Dates: start: 20070901, end: 20071015

REACTIONS (13)
  - ARTHRALGIA [None]
  - CHILLS [None]
  - DYSPNOEA [None]
  - FATIGUE [None]
  - HAEMATEMESIS [None]
  - MALAISE [None]
  - PAIN [None]
  - PHARYNGOLARYNGEAL PAIN [None]
  - PRODUCTIVE COUGH [None]
  - PYREXIA [None]
  - RESPIRATORY DISORDER [None]
  - TREMOR [None]
  - VOMITING [None]
